FAERS Safety Report 12627464 (Version 2)
Quarter: 2016Q3

REPORT INFORMATION
  Report Type: Spontaneous
  Country: JP (occurrence: JP)
  Receive Date: 20160805
  Receipt Date: 20160906
  Transmission Date: 20161109
  Serious: Yes (Hospitalization, Other)
  Sender: FDA-Public Use
  Company Number: JP-SA-2016SA141387

PATIENT
  Age: 12 Year
  Sex: Male
  Weight: 24.2 kg

DRUGS (10)
  1. VFEND [Concomitant]
     Active Substance: VORICONAZOLE
     Indication: INFECTION PROPHYLAXIS
     Route: 048
     Dates: start: 20160702, end: 20160726
  2. AZUNOL [Concomitant]
     Active Substance: SODIUM GUALENATE
     Indication: INFECTION PROPHYLAXIS
     Dosage: GARGLE
     Dates: start: 20160705, end: 20160726
  3. HEPARIN [Concomitant]
     Active Substance: HEPARIN SODIUM
     Indication: DRY SKIN
     Dosage: OIL BASED CREAM
     Route: 061
     Dates: start: 20160707, end: 20160727
  4. FLUDARA [Suspect]
     Active Substance: FLUDARABINE PHOSPHATE
     Indication: CHEMOTHERAPY
     Route: 065
     Dates: start: 20160711, end: 20160714
  5. ACELIO [Concomitant]
     Active Substance: ACETAMINOPHEN
     Indication: PYREXIA
     Route: 042
     Dates: start: 20160719, end: 20160729
  6. FIRSTCIN [Concomitant]
     Active Substance: CEFOZOPRAN HYDROCHLORIDE
     Indication: PROPHYLAXIS
     Route: 042
     Dates: start: 20160719, end: 20160726
  7. CYCLOPHOSPHAMIDE. [Concomitant]
     Active Substance: CYCLOPHOSPHAMIDE
     Indication: CHEMOTHERAPY
     Dosage: 400MG/DAY (500MG/M2)
     Dates: start: 20160711, end: 20160712
  8. MAGMITT [Concomitant]
     Active Substance: MAGNESIUM OXIDE
     Indication: CONSTIPATION
     Route: 048
     Dates: start: 20160702, end: 20160726
  9. PROPETO [Concomitant]
     Indication: DRY SKIN
     Route: 061
     Dates: start: 20160707, end: 20160727
  10. INVESTIGATIONAL DRUG [Suspect]
     Active Substance: INVESTIGATIONAL PRODUCT
     Indication: ACUTE LYMPHOCYTIC LEUKAEMIA RECURRENT
     Route: 042
     Dates: start: 20160719, end: 20160719

REACTIONS (1)
  - Cytokine release syndrome [Recovered/Resolved]

NARRATIVE: CASE EVENT DATE: 20160721
